FAERS Safety Report 4335187-2 (Version None)
Quarter: 2004Q2

REPORT INFORMATION
  Report Type: 
  Country: None (occurrence: None)
  Receive Date: 20040408
  Receipt Date: 20040331
  Transmission Date: 20050107
  Serious: Yes (Disabling, Other)
  Sender: FDA-Public Use
  Company Number: PHRM2004FR01404

PATIENT
  Age: 65 Year
  Sex: Female

DRUGS (1)
  1. EXELON [Suspect]
     Dosage: 12 MG/DAY
     Route: 048
     Dates: start: 20020701

REACTIONS (2)
  - DRUG INEFFECTIVE [None]
  - NUCHAL RIGIDITY [None]
